FAERS Safety Report 9500950 (Version 1)
Quarter: 2013Q3

REPORT INFORMATION
  Report Type: Spontaneous
  Country: GB (occurrence: GB)
  Receive Date: 20130905
  Receipt Date: 20130905
  Transmission Date: 20140515
  Serious: Yes (Death, Life-Threatening, Hospitalization, Other)
  Sender: FDA-Public Use
  Company Number: PHHY2013GB096000

PATIENT
  Age: 89 Year
  Sex: Male

DRUGS (3)
  1. AMOXICILLIN [Suspect]
     Indication: INFECTIVE EXACERBATION OF CHRONIC OBSTRUCTIVE AIRWAYS DISEASE
     Dosage: 250 MG, TID
     Route: 048
     Dates: start: 20120112, end: 20120119
  2. CEFACLOR [Suspect]
     Indication: INFECTIVE EXACERBATION OF CHRONIC OBSTRUCTIVE AIRWAYS DISEASE
     Dosage: 375 MG, BID
     Route: 048
     Dates: start: 20111201, end: 20111208
  3. CEFACLOR [Suspect]
     Dosage: 375 MG, BID
     Route: 048
     Dates: start: 20120123, end: 20120130

REACTIONS (2)
  - Pneumonia [Fatal]
  - Treatment failure [Unknown]
